FAERS Safety Report 22123246 (Version 1)
Quarter: 2023Q1

REPORT INFORMATION
  Report Type: Report from Study
  Country: US (occurrence: None)
  Receive Date: 20230322
  Receipt Date: 20230322
  Transmission Date: 20230418
  Serious: Yes (Death)
  Sender: FDA-Public Use
  Company Number: US-ROCHE-3313171

PATIENT

DRUGS (3)
  1. VENETOCLAX [Suspect]
     Active Substance: VENETOCLAX
     Indication: Mantle cell lymphoma
     Dosage: DATE OF COMPLETION OF FIRST DOSE CYCLE 1: 24/APR/2019 AND CYCLE C3: 19/MAY/2019
     Route: 048
  2. OBINUTUZUMAB [Suspect]
     Active Substance: OBINUTUZUMAB
     Indication: Mantle cell lymphoma
     Dosage: DATE OF COMPLETION OF FIRST DOSE CYCLE 1: 24/APR/2019 AND CYCLE C3: 19/MAY/2019
     Route: 042
  3. BENDAMUSTINE [Suspect]
     Active Substance: BENDAMUSTINE
     Indication: Mantle cell lymphoma
     Dosage: DATE OF COMPLETION OF FIRST DOSE CYCLE 1: 24/APR/2019 AND CYCLE C3: 19/MAY/2019
     Route: 042

REACTIONS (1)
  - Death [Fatal]

NARRATIVE: CASE EVENT DATE: 20200511
